FAERS Safety Report 21471752 (Version 2)
Quarter: 2022Q4

REPORT INFORMATION
  Report Type: Spontaneous
  Country: US (occurrence: US)
  Receive Date: 20221018
  Receipt Date: 20221031
  Transmission Date: 20230113
  Serious: Yes (Hospitalization)
  Sender: FDA-Public Use
  Company Number: US-ELI_LILLY_AND_COMPANY-US202210002900

PATIENT
  Age: 69 Year
  Sex: Female

DRUGS (6)
  1. VERZENIO [Suspect]
     Active Substance: ABEMACICLIB
     Indication: Breast cancer
     Dosage: 150 MG, BID
     Route: 048
     Dates: start: 202203
  2. VERZENIO [Suspect]
     Active Substance: ABEMACICLIB
     Dosage: 150 MG, BID
     Route: 048
     Dates: start: 202203, end: 202205
  3. VERZENIO [Suspect]
     Active Substance: ABEMACICLIB
     Dosage: 100 MG, OTHER (IN THE MORNING)
     Route: 048
     Dates: start: 202208
  4. VERZENIO [Suspect]
     Active Substance: ABEMACICLIB
     Dosage: 150 MG, OTHER (AT NIGHT)
     Route: 048
     Dates: start: 202208
  5. FASLODEX [Concomitant]
     Active Substance: FULVESTRANT
     Indication: Product used for unknown indication
  6. XGEVA [Concomitant]
     Active Substance: DENOSUMAB
     Indication: Bone disorder

REACTIONS (9)
  - Dehydration [Recovered/Resolved]
  - Illness [Recovered/Resolved]
  - Paraesthesia [Not Recovered/Not Resolved]
  - COVID-19 [Recovered/Resolved]
  - Norovirus infection [Unknown]
  - Stress [Unknown]
  - Full blood count decreased [Unknown]
  - Haemoglobin decreased [Not Recovered/Not Resolved]
  - Alopecia [Recovered/Resolved]

NARRATIVE: CASE EVENT DATE: 20220501
